FAERS Safety Report 7600800 (Version 4)
Quarter: 2012Q4

REPORT INFORMATION
  Report Type: 
  Country: TR (occurrence: TR)
  Receive Date: 20100921
  Receipt Date: 20120924
  Transmission Date: 20130627
  Serious: Yes (Other)
  Sender: FDA-Public Use
  Company Number: PHHY2010TR38195

PATIENT
  Age: 39 Year
  Sex: Female

DRUGS (2)
  1. SANDOSTATIN LAR [Suspect]
     Indication: ACROMEGALY
     Dosage: 20 mg, UNK
     Route: 030
  2. SANDOSTATIN LAR [Suspect]
     Dosage: 20 mg, UNK
     Route: 030
     Dates: start: 20100817

REACTIONS (3)
  - Abortion incomplete [Unknown]
  - Normal newborn [Unknown]
  - Exposure during pregnancy [Unknown]
